FAERS Safety Report 8355161-9 (Version None)
Quarter: 2012Q2

REPORT INFORMATION
  Report Type: 
  Country: None (occurrence: None)
  Receive Date: 20120511
  Receipt Date: 20120427
  Transmission Date: 20120825
  Serious: Yes (Other)
  Sender: FDA-Public Use
  Company Number: CHPA2012US010082

PATIENT
  Age: 47 Year
  Sex: Male

DRUGS (1)
  1. TRANSDERM SCOP [Suspect]
     Indication: DIZZINESS
     Dosage: UNK, EVERY 3-4 DAYS
     Route: 062
     Dates: start: 20120101

REACTIONS (8)
  - GASTRIC DISORDER [None]
  - OFF LABEL USE [None]
  - PANIC ATTACK [None]
  - WITHDRAWAL SYNDROME [None]
  - INAPPROPRIATE SCHEDULE OF DRUG ADMINISTRATION [None]
  - DRUG DEPENDENCE [None]
  - DIZZINESS [None]
  - NAUSEA [None]
